FAERS Safety Report 7555001-1 (Version None)
Quarter: 2011Q2

REPORT INFORMATION
  Report Type: 
  Country: None (occurrence: None)
  Receive Date: 20110617
  Receipt Date: 20110607
  Transmission Date: 20111010
  Serious: Yes (Death, Life-Threatening, Hospitalization, Other)
  Sender: FDA-Public Use
  Company Number: NL-GENZYME-CLOF-1001615

PATIENT
  Sex: Male
  Weight: 86 kg

DRUGS (8)
  1. AMSACRINE [Suspect]
     Indication: ACUTE LEUKAEMIA
     Dosage: 245 MG, UNK
     Route: 042
     Dates: start: 20110430, end: 20110502
  2. FLUCONAZOLE [Concomitant]
     Indication: INFECTION
     Dosage: 100 MG, QD
     Route: 042
     Dates: start: 20110508, end: 20110511
  3. MEROPENEM [Concomitant]
     Indication: INFECTION
     Dosage: 1500 MG, TID
     Route: 042
     Dates: start: 20110507, end: 20110511
  4. CYTARABINE [Suspect]
     Indication: ACUTE LEUKAEMIA
     Dosage: 4088 MG, UNK
     Route: 042
     Dates: start: 20110427, end: 20110502
  5. METRONIDAZOLE [Concomitant]
     Indication: INFECTION
     Dosage: 500 MG, TID
     Route: 042
     Dates: start: 20110509, end: 20110511
  6. METHYLCELLULOSE [Concomitant]
     Indication: PROPHYLAXIS
     Dosage: UNK
     Route: 047
     Dates: start: 20110426, end: 20110511
  7. EVOLTRA [Suspect]
     Indication: ACUTE LEUKAEMIA
     Dosage: 20 MG, UNK
     Route: 042
     Dates: start: 20110427, end: 20110501
  8. POTASSIUM CHLORIDE [Concomitant]
     Indication: BLOOD POTASSIUM DECREASED
     Dosage: UNK
     Route: 042
     Dates: start: 20110510, end: 20110511

REACTIONS (3)
  - SEPSIS [None]
  - THROMBOCYTOPENIA [None]
  - CEREBRAL HAEMORRHAGE [None]
